FAERS Safety Report 7385910-8 (Version None)
Quarter: 2011Q1

REPORT INFORMATION
  Report Type: 
  Country: None (occurrence: None)
  Receive Date: 20110331
  Receipt Date: 20110325
  Transmission Date: 20110831
  Serious: Yes (Other)
  Sender: FDA-Public Use
  Company Number: US-PFIZER INC-2011068202

PATIENT
  Sex: Female
  Weight: 64.853 kg

DRUGS (3)
  1. IBUPROFEN [Suspect]
     Indication: PAIN
  2. IMPLANON [Suspect]
     Indication: CONTRACEPTION
     Dosage: UNK
     Dates: start: 20101101
  3. IBUPROFEN [Suspect]
     Indication: HEADACHE
     Dosage: UNK
     Dates: start: 20101201

REACTIONS (4)
  - HAEMATEMESIS [None]
  - GASTRITIS [None]
  - NAUSEA [None]
  - BACK PAIN [None]
